FAERS Safety Report 8246505-7 (Version None)
Quarter: 2012Q1

REPORT INFORMATION
  Report Type: 
  Country: None (occurrence: None)
  Receive Date: 20120327
  Receipt Date: 20120227
  Transmission Date: 20120608
  Serious: Yes (Hospitalization, Other)
  Sender: FDA-Public Use
  Company Number: 2011PROUSA00878

PATIENT
  Age: 75 Year
  Sex: Male
  Weight: 58 kg

DRUGS (9)
  1. BONIVA [Concomitant]
  2. TAMSULOSIN HCL (TAMSULOSIN HYDROCHLORIDE) [Concomitant]
  3. FIRMAGON (DEGRAELIX ACETATE) [Concomitant]
  4. PAROXETINE HYDROCHLORIDE (PAROXETINE HYDROCHLORDIE) [Concomitant]
  5. ASCORBIC ACID [Concomitant]
  6. CHOLECALCIFEROL (CHOLECALCIFEROL) [Concomitant]
  7. PROVENGE [Suspect]
     Dosage: 250 ML, SINGLE, INTRAVENOUS
     Route: 042
     Dates: start: 20111114, end: 20111114
  8. ALPRAZOLAM [Concomitant]
  9. PROVENGE [Suspect]
     Indication: PROSTATE CANCER METASTATIC
     Dosage: 250 ML, SINGLE, INTRAVENOUS
     Route: 042
     Dates: start: 20111031, end: 20111031

REACTIONS (21)
  - DISEASE PROGRESSION [None]
  - FATIGUE [None]
  - HYPOTENSION [None]
  - BACK PAIN [None]
  - HAEMOGLOBIN DECREASED [None]
  - VIRAL INFECTION [None]
  - NOCTURIA [None]
  - PAIN [None]
  - DEHYDRATION [None]
  - CHRONIC OBSTRUCTIVE PULMONARY DISEASE [None]
  - INFLUENZA LIKE ILLNESS [None]
  - OSTEOPENIA [None]
  - ATRIAL FIBRILLATION [None]
  - URGE INCONTINENCE [None]
  - HAEMATURIA [None]
  - VOMITING [None]
  - TACHYCARDIA [None]
  - HAEMATEMESIS [None]
  - GENERAL PHYSICAL HEALTH DETERIORATION [None]
  - NAUSEA [None]
  - DECREASED APPETITE [None]
